FAERS Safety Report 18575544 (Version 2)
Quarter: 2020Q4

REPORT INFORMATION
  Report Type: Spontaneous
  Country: US (occurrence: US)
  Receive Date: 20201203
  Receipt Date: 20201221
  Transmission Date: 20210114
  Serious: Yes (Other)
  Sender: FDA-Public Use
  Company Number: US-FARMAPROD-202011-1591

PATIENT
  Age: 75 Year
  Sex: Male

DRUGS (9)
  1. OXERVATE [Suspect]
     Active Substance: CENEGERMIN-BKBJ
     Indication: NEUROTROPHIC KERATOPATHY
     Route: 047
     Dates: start: 20201029, end: 20201111
  2. FORTI PRED [Concomitant]
  3. PREDNISOLONE. [Concomitant]
     Active Substance: PREDNISOLONE
     Indication: CORNEAL GRAFT FAILURE
     Route: 047
  4. TOBRAMYCIN. [Concomitant]
     Active Substance: TOBRAMYCIN
     Indication: INFECTION
     Route: 047
     Dates: start: 20201009, end: 20201203
  5. BESIVANCE [Concomitant]
     Active Substance: BESIFLOXACIN
     Indication: ANTIBIOTIC PROPHYLAXIS
     Route: 047
     Dates: start: 20201010
  6. VALTREX [Concomitant]
     Active Substance: VALACYCLOVIR HYDROCHLORIDE
     Indication: HERPES SIMPLEX
     Route: 048
  7. OXERVATE [Suspect]
     Active Substance: CENEGERMIN-BKBJ
     Route: 047
     Dates: start: 20201203
  8. TEARS [Concomitant]
     Active Substance: LANOLIN\PARAFFIN
     Route: 047
  9. VANCOMYCIN [Concomitant]
     Active Substance: VANCOMYCIN
     Indication: INFECTION
     Route: 047
     Dates: start: 20201009, end: 20201203

REACTIONS (2)
  - Corneal transplant [Unknown]
  - Eye infection viral [Recovering/Resolving]

NARRATIVE: CASE EVENT DATE: 20201009
